FAERS Safety Report 13454086 (Version 1)
Quarter: 2017Q2

REPORT INFORMATION
  Report Type: Spontaneous
  Country: US (occurrence: US)
  Receive Date: 20170418
  Receipt Date: 20170418
  Transmission Date: 20170830
  Serious: No
  Sender: FDA-Public Use
  Company Number: US-ALLERGAN-1673348US

PATIENT
  Age: 73 Year
  Sex: Female

DRUGS (2)
  1. LATISSE [Suspect]
     Active Substance: BIMATOPROST
     Indication: GROWTH OF EYELASHES
     Dosage: 2 GTT, QHS
     Route: 061
     Dates: start: 2015
  2. RENOVA                             /00279601/ [Concomitant]
     Indication: SKIN DISORDER
     Dosage: UNK
     Route: 061

REACTIONS (3)
  - Drug dose omission [Unknown]
  - Wrong technique in product usage process [Unknown]
  - Therapeutic response decreased [Unknown]

NARRATIVE: CASE EVENT DATE: 2015
